FAERS Safety Report 4959510-0 (Version None)
Quarter: 2006Q1

REPORT INFORMATION
  Report Type: 
  Country: None (occurrence: None)
  Receive Date: 20060331
  Receipt Date: 20060314
  Transmission Date: 20060701
  Serious: Yes (Other)
  Sender: FDA-Public Use
  Company Number: JP-MERCK-0603USA04421

PATIENT
  Age: 67 Year
  Sex: Male
  Weight: 61 kg

DRUGS (4)
  1. PROPECIA [Suspect]
     Route: 048
     Dates: start: 20060211, end: 20060221
  2. URINORM [Concomitant]
     Indication: HYPERURICAEMIA
     Route: 048
     Dates: start: 20060222, end: 20060225
  3. HORSETAIL AND PIPSISSEWA AND POPULUS TREMULA AND PULSATILLA [Concomitant]
     Indication: BENIGN PROSTATIC HYPERPLASIA
     Route: 048
     Dates: end: 20060221
  4. COZAAR [Concomitant]
     Indication: HYPERTENSION
     Route: 048
     Dates: end: 20060221

REACTIONS (3)
  - BLOOD URIC ACID INCREASED [None]
  - DYSURIA [None]
  - POLLAKIURIA [None]
